FAERS Safety Report 24090202 (Version 1)
Quarter: 2024Q3

REPORT INFORMATION
  Report Type: Spontaneous
  Country: US (occurrence: US)
  Receive Date: 20240715
  Receipt Date: 20240715
  Transmission Date: 20241016
  Serious: No
  Sender: PERRIGO
  Company Number: US-PERRIGO-23US012993

PATIENT
  Sex: Male

DRUGS (3)
  1. MINOXIDIL [Suspect]
     Active Substance: MINOXIDIL
     Indication: Alopecia
     Dosage: UNKNOWN, UNKNOWN
     Route: 048
     Dates: start: 2022
  2. MINOXIDIL [Suspect]
     Active Substance: MINOXIDIL
     Indication: Accidental exposure to product
     Dosage: UNKNOWN, UNKNOWN
     Route: 061
     Dates: start: 2022
  3. MINOXIDIL [Suspect]
     Active Substance: MINOXIDIL
     Dosage: 1/3 DOSE, UNKNOWN
     Route: 061
     Dates: start: 2022

REACTIONS (4)
  - Drug ineffective [Unknown]
  - Underdose [Unknown]
  - Product administered at inappropriate site [Unknown]
  - Accidental exposure to product [Unknown]

NARRATIVE: CASE EVENT DATE: 20220101
